FAERS Safety Report 5006775-5 (Version None)
Quarter: 2006Q2

REPORT INFORMATION
  Report Type: 
  Country: None (occurrence: None)
  Receive Date: 20060516
  Receipt Date: 20060505
  Transmission Date: 20061013
  Serious: Yes (Death, Life-Threatening, Hospitalization)
  Sender: FDA-Public Use
  Company Number: 2006-00234

PATIENT
  Age: 48 Year
  Sex: Male

DRUGS (3)
  1. VELCADE [Suspect]
     Indication: MULTIPLE MYELOMA
     Dosage: 1.00 MG/M2, INTRAVENOUS
     Route: 042
     Dates: start: 20060120, end: 20060131
  2. DOXORUBICIN (DOXORUBICIN) [Suspect]
     Indication: MULTIPLE MYELOMA
     Dosage: 9.00 MG/M2, INTRAVENOUS
     Route: 042
     Dates: start: 20060120, end: 20060131
  3. DEXAMETHASONE [Suspect]
     Indication: MULTIPLE MYELOMA
     Dosage: 40.00 MG, INTRAVENOUS
     Route: 042
     Dates: start: 20060120, end: 20060131

REACTIONS (17)
  - ACIDOSIS [None]
  - ARTERIOSCLEROSIS CORONARY ARTERY [None]
  - ATELECTASIS [None]
  - BACTERIAL INFECTION [None]
  - CARDIAC FAILURE ACUTE [None]
  - CORONARY ARTERY STENOSIS [None]
  - FEBRILE NEUTROPENIA [None]
  - GENERAL PHYSICAL HEALTH DETERIORATION [None]
  - HAEMODIALYSIS [None]
  - HERPES ZOSTER DISSEMINATED [None]
  - HYPERKALAEMIA [None]
  - PANCYTOPENIA [None]
  - PNEUMONIA [None]
  - RENAL FAILURE ACUTE [None]
  - RESPIRATORY TRACT HAEMORRHAGE [None]
  - SEPTIC SHOCK [None]
  - SERUM FERRITIN INCREASED [None]
